FAERS Safety Report 16418164 (Version 1)
Quarter: 2019Q2

REPORT INFORMATION
  Report Type: Spontaneous
  Country: SE (occurrence: SE)
  Receive Date: 20190611
  Receipt Date: 20190611
  Transmission Date: 20190711
  Serious: Yes (Other)
  Sender: FDA-Public Use
  Company Number: SE-TEVA-2019-SE-1060864

PATIENT
  Age: 76 Year
  Sex: Female

DRUGS (19)
  1. BRICANYL TURBUHALER 0,25 MG/DOS INHALATIONSPULVER [Concomitant]
     Dosage: ^1-2 INHALATION VID BEHOV^
     Route: 055
     Dates: start: 20171127
  2. DUROFERON 100 MG FE2+ DEPOTTABLETT [Concomitant]
     Dates: start: 20190118
  3. PANTOPRAZOLE [Concomitant]
     Active Substance: PANTOPRAZOLE
     Dates: start: 20190328
  4. PARACETAMOL/KODEIN [Concomitant]
     Dosage: ^1-2 TABLETT VID BEHOV, H?GST 8 TABLETTER PER DYGN^
     Dates: start: 20190409
  5. WARAN 2,5 MG TABLETT [Concomitant]
     Dosage: DOSERAS EFTER SVAR P? BLODPROV PK-INR
     Dates: start: 20180909
  6. EMERADE 500 MIKROGRAM INJEKTIONSV?TSKA, L?SNING I F?RFYLLD INJEKTIONSP [Concomitant]
     Dosage: 1 PRE-FILLED PEN AT HOOVES
     Route: 030
     Dates: start: 20171127
  7. RAMIPRIL. [Concomitant]
     Active Substance: RAMIPRIL
     Dates: start: 20180406
  8. FOLACIN 1 MG TABLETT [Concomitant]
     Dates: start: 20171128
  9. ALENDRONIC ACID [Suspect]
     Active Substance: ALENDRONIC ACID
     Indication: OSTEOPOROSIS
     Dates: start: 20190409
  10. PRIMPERAN 10 MG TABLETT [Concomitant]
     Dosage: ^1 TABLETT VID BEHOV, H?GST 3 TABLETTER PER DYGN^
     Dates: start: 20171127
  11. CITALOPRAM [Concomitant]
     Active Substance: CITALOPRAM HYDROBROMIDE
     Dates: start: 20171128
  12. CILAXORAL 7,5 MG/ML ORALA DROPPAR, L?SNING [Concomitant]
     Dosage: 10-20 DROPPAR TILL NATTEN VID BEHOV H?GST 20 DROPPAR PER DYGN
     Dates: start: 20180406
  13. METOPROLOL. [Concomitant]
     Active Substance: METOPROLOL
     Dates: start: 20171128
  14. CALCICHEW-D3 CITRON 500 MG/400 IE TUGGTABLETT [Concomitant]
     Dates: start: 20190409
  15. STILNOCT 5 MG FILMDRAGERAD TABLETT [Concomitant]
     Active Substance: ZOLPIDEM TARTRATE
     Dosage: .5 TABLET IF NEEDED
     Dates: start: 20190211
  16. SYMBICORT FORTE TURBUHALER 320 MIKROGRAM/9 MIKROGRAM/INHALATION INHALA [Concomitant]
     Route: 055
     Dates: start: 20171127
  17. SPIRIVA RESPIMAT 2,5 MIKROGRAM INHALATIONSV?TSKA, L?SNING [Concomitant]
     Route: 055
     Dates: start: 20171128
  18. TAVEGYL 1 MG TABLETT [Concomitant]
     Dosage: ^1 TABLETT VID BEHOV, H?GST 2 TABLETTER PER DYGN^
     Dates: start: 20171127
  19. MOVICOL  PULVER TILL ORAL L?SNING I DOSP?SE [Concomitant]
     Dosage: 1 SACHET IF NEEDED, NOT MORE THAN 1 SACHET PER DAY^
     Route: 048
     Dates: start: 20171127

REACTIONS (2)
  - Cough [Unknown]
  - Dyspnoea [Unknown]

NARRATIVE: CASE EVENT DATE: 2019
